FAERS Safety Report 18991346 (Version 1)
Quarter: 2021Q1

REPORT INFORMATION
  Report Type: Report from Study
  Country: US (occurrence: US)
  Receive Date: 20210310
  Receipt Date: 20210310
  Transmission Date: 20210420
  Serious: Yes (Other)
  Sender: FDA-Public Use
  Company Number: US-MYLANLABS-2021M1014359

PATIENT
  Sex: Male

DRUGS (3)
  1. PEGLOTICASE [Suspect]
     Active Substance: PEGLOTICASE
     Indication: GOUT
     Dosage: 8 MILLIGRAM, BIWEEKLY
  2. FOLIC ACID. [Concomitant]
     Active Substance: FOLIC ACID
     Indication: PRODUCT USED FOR UNKNOWN INDICATION
     Dosage: 1 MILLIGRAM, QW
     Route: 065
  3. METHOTREXATE. [Suspect]
     Active Substance: METHOTREXATE
     Indication: GOUT
     Dosage: 15 MILLIGRAM, QW
     Route: 048

REACTIONS (2)
  - Off label use [Unknown]
  - Sepsis [Unknown]
